FAERS Safety Report 19080691 (Version 1)
Quarter: 2021Q1

REPORT INFORMATION
  Report Type: Spontaneous
  Country: FR (occurrence: FR)
  Receive Date: 20210331
  Receipt Date: 20210331
  Transmission Date: 20210420
  Serious: Yes (Other)
  Sender: FDA-Public Use
  Company Number: FR-TEVA-2020-FR-1837016

PATIENT
  Age: 54 Year
  Sex: Female

DRUGS (1)
  1. COPAXONE [Suspect]
     Active Substance: GLATIRAMER ACETATE
     Dosage: SINCE 2 YEARS
     Route: 065
     Dates: start: 2018, end: 2021

REACTIONS (3)
  - Skin discolouration [Unknown]
  - Skin indentation [Unknown]
  - Injection site pain [Not Recovered/Not Resolved]
